FAERS Safety Report 4313531-X (Version None)
Quarter: 2004Q1

REPORT INFORMATION
  Report Type: 
  Country: None (occurrence: None)
  Receive Date: 20040308
  Receipt Date: 20040206
  Transmission Date: 20041129
  Serious: Yes (Life-Threatening)
  Sender: FDA-Public Use
  Company Number: IN-GLAXOSMITHKLINE-B0322628A

PATIENT
  Age: 24 Year
  Sex: Female
  Weight: 41 kg

DRUGS (2)
  1. AUGMENTIN [Suspect]
     Indication: PROPHYLAXIS
     Dosage: 1.2G SEE DOSAGE TEXT
     Route: 042
     Dates: start: 20040206, end: 20040206
  2. BUPIVACAINE [Concomitant]
     Indication: SPINAL ANAESTHESIA
     Dosage: 2ML UNKNOWN
     Route: 008
     Dates: start: 20040206

REACTIONS (4)
  - BRONCHOSPASM [None]
  - CHEST PAIN [None]
  - HAEMOGLOBIN DECREASED [None]
  - HYPOTENSION [None]
